FAERS Safety Report 9315902 (Version 2)
Quarter: 2013Q3

REPORT INFORMATION
  Report Type: Report from Study
  Country: DE (occurrence: DE)
  Receive Date: 20130530
  Receipt Date: 20130716
  Transmission Date: 20140515
  Serious: Yes (Other)
  Sender: FDA-Public Use
  Company Number: DE-ROCHE-1229386

PATIENT
  Age: 43 Year
  Sex: Female
  Weight: 86 kg

DRUGS (3)
  1. BEVACIZUMAB [Suspect]
     Indication: RECTAL CANCER
     Dosage: LAST DOSE PRIOR TO SAE:13/JAN/2013
     Route: 042
     Dates: start: 20120823, end: 20130113
  2. CAPECITABINE [Suspect]
     Indication: RECTAL CANCER
     Route: 048
     Dates: start: 20120823, end: 20121213
  3. IRINOTECAN [Suspect]
     Indication: RECTAL CANCER
     Dosage: LAST DOSE PRIOR TO SAE:13/DEC/2012
     Route: 042
     Dates: start: 20120823, end: 20121213

REACTIONS (1)
  - Female genital tract fistula [Recovering/Resolving]
